FAERS Safety Report 4414183-0 (Version None)
Quarter: 2004Q3

REPORT INFORMATION
  Report Type: 
  Country: None (occurrence: None)
  Receive Date: 20040728
  Receipt Date: 20040701
  Transmission Date: 20050211
  Serious: Yes (Disabling)
  Sender: FDA-Public Use
  Company Number: 2004-DE-03647GD

PATIENT
  Age: 17 Year
  Sex: Female

DRUGS (2)
  1. T-PA (ALTEPLASE) [Suspect]
     Indication: ARTERIAL THROMBOSIS LIMB
     Dosage: 6.25 MG SEE TEXT
     Route: 013
  2. DIPYRIDAMOLE [Suspect]
     Indication: ARTERIAL THROMBOSIS LIMB
     Dosage: THREE 8 H COURSES AT 0.5 MG/KG/H

REACTIONS (10)
  - ANXIETY [None]
  - BRAIN OEDEMA [None]
  - CEREBRAL HAEMORRHAGE [None]
  - COAGULATION FACTOR IX LEVEL INCREASED [None]
  - COAGULATION FACTOR VIII LEVEL INCREASED [None]
  - COAGULATION FACTOR XI LEVEL INCREASED [None]
  - DRUG INEFFECTIVE [None]
  - GLYCOSYLATED HAEMOGLOBIN INCREASED [None]
  - LEG AMPUTATION [None]
  - PULSE ABSENT [None]
